FAERS Safety Report 25761253 (Version 1)
Quarter: 2025Q3

REPORT INFORMATION
  Report Type: Other
  Country: US (occurrence: US)
  Receive Date: 20250904
  Receipt Date: 20250904
  Transmission Date: 20251021
  Serious: Yes (Life-Threatening, Hospitalization, Other)
  Sender: Apozeal Pharmaceuticals
  Company Number: US-Apozeal Pharmaceuticals-2183825

PATIENT
  Age: 35 Year

DRUGS (2)
  1. RISPERIDONE [Suspect]
     Active Substance: RISPERIDONE
     Indication: Product used for unknown indication
  2. ETHYLENE GLYCOL [Suspect]
     Active Substance: ETHYLENE GLYCOL

REACTIONS (19)
  - Unresponsive to stimuli [Recovered/Resolved]
  - Overdose [Unknown]
  - Kussmaul respiration [Recovered/Resolved]
  - Hypocalcaemia [Recovered/Resolved]
  - Hypovolaemia [Recovered/Resolved]
  - Dysarthria [Recovered/Resolved]
  - Lethargy [Recovered/Resolved]
  - Sinus tachycardia [Recovered/Resolved]
  - Blood glucose increased [Recovered/Resolved]
  - Hypotension [Recovered/Resolved]
  - Tachycardia [Recovered/Resolved]
  - Metabolic acidosis [Recovered/Resolved]
  - Mental status changes [Recovered/Resolved]
  - Electrocardiogram QT prolonged [Recovered/Resolved]
  - Acute kidney injury [Recovered/Resolved]
  - Arrhythmia [Recovered/Resolved]
  - Depressed level of consciousness [Recovered/Resolved]
  - Torsade de pointes [Recovered/Resolved]
  - Loss of consciousness [Recovered/Resolved]
